FAERS Safety Report 5560710-X (Version None)
Quarter: 2007Q4

REPORT INFORMATION
  Report Type: 
  Country: None (occurrence: None)
  Receive Date: 20071215
  Receipt Date: 20071116
  Transmission Date: 20080405
  Serious: No
  Sender: FDA-Public Use
  Company Number: US-ABBOTT-07P-163-0425437-00

PATIENT
  Sex: Female
  Weight: 81.72 kg

DRUGS (2)
  1. HUMIRA [Suspect]
     Indication: RHEUMATOID ARTHRITIS
     Route: 058
     Dates: start: 20070601
  2. FLU VACCINE [Concomitant]
     Indication: IMMUNISATION
     Route: 030
     Dates: start: 20071030, end: 20071030

REACTIONS (2)
  - INFLUENZA LIKE ILLNESS [None]
  - INJECTION SITE IRRITATION [None]
